FAERS Safety Report 5509724-6 (Version None)
Quarter: 2007Q4

REPORT INFORMATION
  Report Type: 
  Country: None (occurrence: None)
  Receive Date: 20071108
  Receipt Date: 20071106
  Transmission Date: 20080405
  Serious: Yes (Hospitalization, Other)
  Sender: FDA-Public Use
  Company Number: FR-ELI_LILLY_AND_COMPANY-FR200709001756

PATIENT
  Age: 49 Year
  Sex: Female
  Weight: 103 kg

DRUGS (5)
  1. ZYPREXA [Suspect]
     Indication: PSYCHOTIC DISORDER
     Dosage: 10 MG, DAILY (1/D)
     Route: 048
     Dates: start: 20040101, end: 20070701
  2. ZYPREXA [Suspect]
     Dosage: 15 MG, DAILY (1/D)
     Route: 048
     Dates: start: 20070701
  3. LUDIOMIL /SCH/ [Concomitant]
     Indication: PSYCHOTIC DISORDER
     Dosage: 75 MG, DAILY (1/D)
     Route: 048
     Dates: start: 20020801
  4. DEPAKOTE [Concomitant]
     Indication: PSYCHOTIC DISORDER
     Dosage: 500 MG, 2/D
     Route: 048
     Dates: start: 20020801
  5. NOCTAMIDE [Concomitant]
     Indication: PSYCHOTIC DISORDER
     Dosage: 1 MG, EACH EVENING
     Route: 048
     Dates: start: 20020801

REACTIONS (9)
  - BLOOD PHOSPHORUS DECREASED [None]
  - BLOOD PRESSURE INCREASED [None]
  - CONDITION AGGRAVATED [None]
  - DYSPNOEA [None]
  - KETOACIDOSIS [None]
  - RENAL FAILURE [None]
  - SINUS TACHYCARDIA [None]
  - URINARY TRACT INFECTION STAPHYLOCOCCAL [None]
  - WEIGHT INCREASED [None]
